FAERS Safety Report 7859217-6 (Version None)
Quarter: 2011Q4

REPORT INFORMATION
  Report Type: 
  Country: None (occurrence: None)
  Receive Date: 20111027
  Receipt Date: 20111027
  Transmission Date: 20120403
  Serious: Yes (Death)
  Sender: FDA-Public Use
  Company Number: None

PATIENT
  Sex: Male
  Weight: 125.64 kg

DRUGS (2)
  1. RISPERIDONE [Suspect]
     Indication: ABNORMAL BEHAVIOUR
     Dosage: 1 MG
     Route: 048
  2. RISPERIDONE [Concomitant]
     Dosage: 0.5MG
     Route: 048

REACTIONS (8)
  - RESPIRATORY ARREST [None]
  - DEPRESSED LEVEL OF CONSCIOUSNESS [None]
  - MALAISE [None]
  - TYPE 2 DIABETES MELLITUS [None]
  - UNRESPONSIVE TO STIMULI [None]
  - FATIGUE [None]
  - SUDDEN DEATH [None]
  - RESPIRATORY RATE INCREASED [None]
